FAERS Safety Report 4846994-1 (Version None)
Quarter: 2005Q4

REPORT INFORMATION
  Report Type: 
  Country: None (occurrence: None)
  Receive Date: 20051201
  Receipt Date: 20051119
  Transmission Date: 20060501
  Serious: Yes (Other)
  Sender: FDA-Public Use
  Company Number: 2005157347

PATIENT
  Age: 19 Year
  Sex: Male

DRUGS (1)
  1. PURELL ORIGINAL (ETHYL ALCOHOL) [Suspect]
     Dosage: TOPICAL
     Route: 061

REACTIONS (2)
  - ACQUIRED IMMUNODEFICIENCY SYNDROME [None]
  - PHARMACEUTICAL PRODUCT COMPLAINT [None]
